FAERS Safety Report 4951214-3 (Version None)
Quarter: 2006Q1

REPORT INFORMATION
  Report Type: 
  Country: None (occurrence: None)
  Receive Date: 20060314
  Receipt Date: 20060303
  Transmission Date: 20060701
  Serious: Yes (Other)
  Sender: FDA-Public Use
  Company Number: 200611270BWH

PATIENT

DRUGS (1)
  1. NEXAVAR [Suspect]
     Dosage: ORAL

REACTIONS (1)
  - TRANSIENT ISCHAEMIC ATTACK [None]
